FAERS Safety Report 4510771-1 (Version None)
Quarter: 2004Q4

REPORT INFORMATION
  Report Type: 
  Country: None (occurrence: None)
  Receive Date: 20041122
  Receipt Date: 20041108
  Transmission Date: 20050328
  Serious: Yes (Hospitalization)
  Sender: FDA-Public Use
  Company Number: 207290

PATIENT
  Age: 46 Year
  Sex: Male
  Weight: 55 kg

DRUGS (7)
  1. AVONEX [Suspect]
     Indication: MULTIPLE SCLEROSIS
     Dosage: 30 MCG QW IM
     Route: 030
     Dates: start: 19971101, end: 19990101
  2. APOZEPAM (DIAZEPAM) [Concomitant]
  3. MARINOL [Concomitant]
  4. TRILEPTAL (OXCARBAZEPIN) [Concomitant]
  5. BACLOFEN [Concomitant]
  6. AMITRIPTYLINE HCL [Concomitant]
  7. DITROPAN [Concomitant]

REACTIONS (2)
  - MALIGNANT PALATE NEOPLASM [None]
  - SQUAMOUS CELL CARCINOMA [None]
